FAERS Safety Report 22241174 (Version 2)
Quarter: 2023Q2

REPORT INFORMATION
  Report Type: Spontaneous
  Country: ES (occurrence: ES)
  Receive Date: 20230421
  Receipt Date: 20230427
  Transmission Date: 20230722
  Serious: Yes (Other)
  Sender: FDA-Public Use
  Company Number: ES-002147023-NVSC2023ES087864

PATIENT
  Sex: Male

DRUGS (1)
  1. LUTATHERA [Suspect]
     Active Substance: LUTETIUM OXODOTREOTIDE LU-177
     Indication: Product used for unknown indication
     Dosage: INJECTION
     Route: 065

REACTIONS (5)
  - Condition aggravated [Unknown]
  - Blood chromogranin A increased [Unknown]
  - Blood lactate dehydrogenase increased [Unknown]
  - Ill-defined disorder [Unknown]
  - Disease progression [Unknown]
